FAERS Safety Report 8376094-8 (Version None)
Quarter: 2012Q2

REPORT INFORMATION
  Report Type: 
  Country: None (occurrence: None)
  Receive Date: 20120522
  Receipt Date: 20120515
  Transmission Date: 20120825
  Serious: Yes (Disabling, Other)
  Sender: FDA-Public Use
  Company Number: PHHY2010BR50200

PATIENT
  Sex: Female
  Weight: 75 kg

DRUGS (13)
  1. GALVUS MET [Suspect]
     Dosage: 2 DF (1000MG/50MG) (1 TAB IN THE MORNING AND 1 TAB AT NIGHT), UNK
     Route: 048
     Dates: end: 20110827
  2. LANTUS [Concomitant]
     Indication: DIABETES MELLITUS
     Dosage: 15 U DAILY, UNK
     Route: 058
  3. GLUCOSAMINE /CHONDROITIN /MSM [Concomitant]
     Indication: INTERVERTEBRAL DISC PROTRUSION
  4. GALVUS MET [Suspect]
     Indication: DIABETES MELLITUS
     Dosage: 2 DF (1000MG/50MG) (1 TAB IN THE MORNING AND 1 TAB AT NIGHT), UNK
     Route: 048
     Dates: end: 20100727
  5. GALVUS MET [Suspect]
     Dosage: 2 DF (1000MG/50MG) (1 TAB IN THE MORNING AND 1 TAB AT NIGHT), UNK
     Route: 048
  6. GLUCOSAMINE /CHONDROITIN /MSM [Concomitant]
     Indication: SPINAL OSTEOARTHRITIS
     Dosage: 1 DF (1 SACHET DAILY)
     Route: 048
     Dates: start: 20100101
  7. INSULIN [Suspect]
     Indication: DIABETES MELLITUS
  8. OTILONIUM BROMIDE [Concomitant]
     Dosage: 02 DF (1 TABLET DAILY ON BREAKFAST AND DINNER)
     Route: 048
     Dates: start: 20090101
  9. MECLOZINE HYDROCHLORIDE [Concomitant]
     Indication: NAUSEA
     Dosage: 100 MG (1 TABLET DAILY), UNK
     Dates: start: 20100101
  10. KETOROLAC TROMETHAMINE [Concomitant]
     Indication: HEADACHE
     Dosage: 10 MG (1 TABLET DAILY), UNK
     Route: 060
  11. FLUOXETINE HCL [Concomitant]
     Indication: DEPRESSION
     Dosage: 40 MG (1 TABLET DAILY)
     Dates: start: 20070101
  12. EXFORGE [Suspect]
     Indication: HYPERTENSION
     Dosage: 1 DF (160/5MG) 1 TABLET IN THE MORNING, UNK
     Route: 048
     Dates: start: 20060101, end: 20110825
  13. ALPRAZOLAM [Concomitant]
     Indication: IRRITABLE BOWEL SYNDROME
     Dosage: 2 MG (1 TABLET TWICE DAILY)
     Route: 048
     Dates: start: 20070101

REACTIONS (11)
  - GAIT DISTURBANCE [None]
  - VOMITING [None]
  - BLOOD GLUCOSE INCREASED [None]
  - WEIGHT DECREASED [None]
  - VENTRICULAR DYSFUNCTION [None]
  - BLOOD PRESSURE INCREASED [None]
  - PAIN IN EXTREMITY [None]
  - SPINAL OSTEOARTHRITIS [None]
  - HEADACHE [None]
  - BACK PAIN [None]
  - MIGRAINE [None]
